FAERS Safety Report 6171691-2 (Version None)
Quarter: 2009Q2

REPORT INFORMATION
  Report Type: 
  Country: None (occurrence: None)
  Receive Date: 20090429
  Receipt Date: 20090423
  Transmission Date: 20091009
  Serious: Yes (Other)
  Sender: FDA-Public Use
  Company Number: A0780140A

PATIENT
  Age: 58 Year
  Sex: Male

DRUGS (5)
  1. ADVAIR HFA [Suspect]
     Indication: CHRONIC OBSTRUCTIVE PULMONARY DISEASE
     Dosage: 1PUFF PER DAY
     Route: 055
     Dates: start: 20060401, end: 20060901
  2. ADVAIR HFA [Suspect]
     Dosage: 1PUFF TWICE PER DAY
     Route: 055
     Dates: start: 20070301, end: 20070701
  3. METHADONE [Concomitant]
  4. DIGOXIN [Concomitant]
  5. VERAPAMIL [Concomitant]

REACTIONS (4)
  - ATRIAL FIBRILLATION [None]
  - CANDIDIASIS [None]
  - MEDICATION ERROR [None]
  - NIGHTMARE [None]
